FAERS Safety Report 5905098-7 (Version None)
Quarter: 2008Q3

REPORT INFORMATION
  Report Type: 
  Country: None (occurrence: None)
  Receive Date: 20080909
  Receipt Date: 20080225
  Transmission Date: 20090109
  Serious: Yes (Hospitalization)
  Sender: FDA-Public Use
  Company Number: 163-20785-07101611

PATIENT
  Age: 51 Year
  Sex: Female

DRUGS (5)
  1. THALOMID [Suspect]
     Indication: MULTIPLE MYELOMA
     Dosage: 100 MG, 1 IN 1 D, ORAL ; 200 MG, 2 IN 1 D, ORAL
     Route: 048
     Dates: start: 20051208, end: 20071005
  2. THALOMID [Suspect]
     Indication: MULTIPLE MYELOMA
     Dosage: 100 MG, 1 IN 1 D, ORAL ; 200 MG, 2 IN 1 D, ORAL
     Route: 048
     Dates: start: 20051104
  3. COUMADIN [Concomitant]
  4. SENSIPAR (CINACALCET HYDROCHLORIDE) [Concomitant]
  5. FOSRENOL [Concomitant]

REACTIONS (4)
  - BLOOD CREATININE ABNORMAL [None]
  - BLOOD CREATININE INCREASED [None]
  - BLOOD POTASSIUM DECREASED [None]
  - BLOOD SODIUM DECREASED [None]
